FAERS Safety Report 18550600 (Version 2)
Quarter: 2020Q4

REPORT INFORMATION
  Report Type: Spontaneous
  Country: US (occurrence: US)
  Receive Date: 20201126
  Receipt Date: 20201229
  Transmission Date: 20210114
  Serious: No
  Sender: FDA-Public Use
  Company Number: US-SA-2020SA337286

PATIENT

DRUGS (1)
  1. DUPIXENT [Suspect]
     Active Substance: DUPILUMAB
     Dosage: 300 MG, QOW
     Route: 058
     Dates: start: 20200702

REACTIONS (4)
  - Asymptomatic COVID-19 [Unknown]
  - SARS-CoV-2 test positive [Unknown]
  - Arthropathy [Unknown]
  - Arthralgia [Unknown]

NARRATIVE: CASE EVENT DATE: 20201119
